FAERS Safety Report 20202458 (Version 1)
Quarter: 2021Q4

REPORT INFORMATION
  Report Type: Spontaneous
  Country: US (occurrence: US)
  Receive Date: 20211217
  Receipt Date: 20211217
  Transmission Date: 20220303
  Serious: Yes (Death, Other)
  Sender: FDA-Public Use
  Company Number: US-009507513-2112USA006021

PATIENT
  Age: 15 Year
  Sex: Male

DRUGS (8)
  1. PRINIVIL [Suspect]
     Active Substance: LISINOPRIL
     Dosage: ROUTE:INGESTION(INGST)
  2. LOSARTAN POTASSIUM [Suspect]
     Active Substance: LOSARTAN POTASSIUM
     Dosage: INGESTION(INGST)
  3. LABETALOL [Suspect]
     Active Substance: LABETALOL\LABETALOL HYDROCHLORIDE
     Dosage: INGESTION(INGST)
  4. CLONAZEPAM [Suspect]
     Active Substance: CLONAZEPAM
     Dosage: INGESTION(INGST)
  5. ALPRAZOLAM [Suspect]
     Active Substance: ALPRAZOLAM
     Dosage: INGESTION(INGST)
  6. SERTRALINE [Suspect]
     Active Substance: SERTRALINE HYDROCHLORIDE
     Dosage: INGESTION(INGST)
  7. PREGABALIN [Suspect]
     Active Substance: PREGABALIN
     Dosage: INGESTION(INGST)
  8. RIVAROXABAN [Suspect]
     Active Substance: RIVAROXABAN
     Dosage: INGESTION(INGST)

REACTIONS (1)
  - Suspected suicide [Fatal]
